FAERS Safety Report 11570104 (Version 1)
Quarter: 2015Q3

REPORT INFORMATION
  Report Type: Spontaneous
  Country: US (occurrence: US)
  Receive Date: 20150929
  Receipt Date: 20150929
  Transmission Date: 20151125
  Serious: Yes (Other)
  Sender: FDA-Public Use
  Company Number: US-PFIZER INC-2015320791

PATIENT
  Age: 62 Year
  Sex: Female

DRUGS (6)
  1. PERINDOPRIL [Concomitant]
     Active Substance: PERINDOPRIL
     Indication: BLOOD PRESSURE ABNORMAL
     Dosage: 4 MG, UNK
  2. FARXIGA [Concomitant]
     Active Substance: DAPAGLIFLOZIN PROPANEDIOL
     Indication: DIABETES MELLITUS
     Dosage: 5 MG, UNK
  3. ACROSOXACIN [Concomitant]
     Indication: BLOOD CHOLESTEROL ABNORMAL
     Dosage: 10 MG, UNK
  4. GLIBENCLAMIDE [Concomitant]
     Active Substance: GLYBURIDE
     Indication: DIABETES MELLITUS
     Dosage: 2.5/500MG, THREE TIMES A DAY
  5. LYRICA [Suspect]
     Active Substance: PREGABALIN
     Indication: FEELING HOT
     Dosage: 75MG CAPSULE ONE AT NIGHT
     Route: 048
     Dates: start: 20150819, end: 20150921
  6. LEVOTHYROXINE. [Concomitant]
     Active Substance: LEVOTHYROXINE
     Indication: THYROID DISORDER
     Dosage: 50 MG, UNK

REACTIONS (9)
  - Fatigue [Recovering/Resolving]
  - Visual impairment [Unknown]
  - Drug ineffective for unapproved indication [Unknown]
  - Bone pain [Unknown]
  - Photophobia [Not Recovered/Not Resolved]
  - Blindness transient [Recovered/Resolved with Sequelae]
  - Condition aggravated [Unknown]
  - Vision blurred [Not Recovered/Not Resolved]
  - Pain [Unknown]

NARRATIVE: CASE EVENT DATE: 20150819
